FAERS Safety Report 9229104 (Version 1)
Quarter: 2013Q2

REPORT INFORMATION
  Report Type: Spontaneous
  Country: US (occurrence: US)
  Receive Date: 20130412
  Receipt Date: 20130412
  Transmission Date: 20140414
  Serious: Yes (Other)
  Sender: FDA-Public Use
  Company Number: US-ASTRAZENECA-2013SE22105

PATIENT
  Age: 40 Year
  Sex: Male
  Weight: 108.9 kg

DRUGS (1)
  1. CRESTOR [Suspect]
     Indication: HYPERLIPIDAEMIA
     Route: 048
     Dates: start: 2005

REACTIONS (2)
  - Tendon rupture [Not Recovered/Not Resolved]
  - Tendon rupture [Unknown]
